FAERS Safety Report 25853667 (Version 2)
Quarter: 2025Q4

REPORT INFORMATION
  Report Type: Spontaneous
  Country: US (occurrence: US)
  Receive Date: 20250926
  Receipt Date: 20251002
  Transmission Date: 20260117
  Serious: Yes (Hospitalization)
  Sender: CSL BEHRING
  Company Number: US-BEH-2025220132

PATIENT
  Age: 71 Year
  Sex: Female
  Weight: 73.5 kg

DRUGS (2)
  1. MIRCERA [Suspect]
     Active Substance: METHOXY POLYETHYLENE GLYCOL-EPOETIN BETA
     Dosage: 30 ?G
     Route: 065
  2. MIRCERA [Suspect]
     Active Substance: METHOXY POLYETHYLENE GLYCOL-EPOETIN BETA
     Dosage: 200 ?G
     Route: 042
     Dates: start: 20250722, end: 20250816

REACTIONS (4)
  - Blood pressure decreased [Unknown]
  - Malaise [Unknown]
  - Erythema [Unknown]
  - Hyporesponsive to stimuli [Unknown]

NARRATIVE: CASE EVENT DATE: 20250816
